FAERS Safety Report 4873160-6 (Version None)
Quarter: 2005Q4

REPORT INFORMATION
  Report Type: 
  Country: None (occurrence: None)
  Receive Date: 20051201
  Receipt Date: 20050818
  Transmission Date: 20060501
  Serious: No
  Sender: FDA-Public Use
  Company Number: 2005PV001259

PATIENT
  Age: 53 Year
  Sex: Female
  Weight: 93.8946 kg

DRUGS (3)
  1. BYETTA [Suspect]
     Indication: DIABETES MELLITUS NON-INSULIN-DEPENDENT
     Dosage: 5 MCG; BID; SC
     Route: 058
     Dates: start: 20050816
  2. PROTONIX [Concomitant]
  3. PREVACID [Concomitant]

REACTIONS (4)
  - DIARRHOEA [None]
  - FEELING HOT [None]
  - HEADACHE [None]
  - NAUSEA [None]
